FAERS Safety Report 16789815 (Version 1)
Quarter: 2019Q3

REPORT INFORMATION
  Report Type: Spontaneous
  Country: US (occurrence: US)
  Receive Date: 20190910
  Receipt Date: 20190910
  Transmission Date: 20191005
  Serious: No
  Sender: FDA-Public Use
  Company Number: US-009507513-1909USA002364

PATIENT
  Age: 8 Month
  Sex: Male

DRUGS (3)
  1. COZAAR [Suspect]
     Active Substance: LOSARTAN POTASSIUM
     Indication: VASCULAR STENOSIS
     Dosage: 6.25 MILLIGRAM, DAILY
     Route: 048
  2. GLOBULIN, IMMUNE [Concomitant]
     Active Substance: HUMAN IMMUNOGLOBULIN G
     Indication: VASCULAR STENOSIS
     Dosage: 13 ROUNDS
     Route: 042
  3. SIROLIMUS. [Concomitant]
     Active Substance: SIROLIMUS
     Dosage: UNK

REACTIONS (1)
  - Off label use [Unknown]
